FAERS Safety Report 8601440 (Version 2)
Quarter: 2012Q4

REPORT INFORMATION
  Report Type: Report from Study
  Country: JP (occurrence: JP)
  Receive Date: 20120606
  Receipt Date: 20120917
  Transmission Date: 20130627
  Serious: Yes (Other)
  Sender: FDA-Public Use
  Company Number: PHHY2010JP51730

PATIENT
  Age: 69 Year
  Sex: Male
  Weight: 69 kg

DRUGS (19)
  1. AMN107 [Suspect]
     Indication: CHRONIC MYELOID LEUKAEMIA
     Dosage: 800 mg daily
     Route: 048
     Dates: start: 20090708, end: 20090721
  2. AMN107 [Suspect]
     Dosage: 800 mg daily
     Route: 048
     Dates: start: 20090729, end: 20090805
  3. AMN107 [Suspect]
     Dosage: 400 mg daily
     Route: 048
     Dates: start: 20090806, end: 20100330
  4. AMN107 [Suspect]
     Dosage: 600 mg daily
     Route: 048
     Dates: start: 20100331, end: 20110201
  5. AMN107 [Suspect]
     Dosage: 400 mg/day
     Route: 048
     Dates: start: 20110202
  6. HYDREA [Concomitant]
     Indication: CHRONIC MYELOID LEUKAEMIA
     Dosage: 500 mg, UNK
     Route: 048
     Dates: start: 20090708, end: 20090714
  7. NEUQUINON [Concomitant]
     Indication: PROPHYLAXIS
     Dosage: 30 mg
     Route: 048
     Dates: start: 20090708
  8. DASEN [Concomitant]
     Dosage: 30 mg
     Route: 048
     Dates: start: 20090708, end: 20110202
  9. ZANTAC [Concomitant]
     Dosage: 300 mg, UNK
     Route: 048
     Dates: start: 20090708, end: 20090714
  10. ALLEGRA [Concomitant]
     Dosage: 120 mg, UNK
     Route: 048
     Dates: start: 20090708, end: 20100818
  11. ADALAT CR [Concomitant]
     Dosage: 20 mg
     Route: 048
     Dates: start: 20090708
  12. ADALAT CR [Concomitant]
     Dosage: 40 mg
     Route: 048
  13. TAKEPRON [Concomitant]
     Dosage: 30 mg
     Route: 048
     Dates: start: 20090710, end: 20090723
  14. FAMOTIDINE [Concomitant]
     Indication: PROPHYLAXIS
     Dosage: 40 mg
     Route: 048
     Dates: start: 20090916
  15. ONON [Concomitant]
     Indication: PROPHYLAXIS
     Dosage: 450 mg
     Route: 048
     Dates: start: 20091111
  16. THEODUR [Concomitant]
     Indication: PROPHYLAXIS
     Dosage: 200 mg
     Route: 048
     Dates: start: 20091111
  17. BASEN [Concomitant]
     Indication: HYPERTENSION
     Dosage: 0.6 g
     Route: 048
     Dates: start: 20100414
  18. BASEN [Concomitant]
     Indication: DIABETES MELLITUS
  19. POLARAMINE [Concomitant]
     Indication: PROPHYLAXIS
     Dosage: 8 mg
     Route: 048
     Dates: start: 20101013

REACTIONS (2)
  - Hypophosphataemia [Recovered/Resolved]
  - Blood phosphorus decreased [Not Recovered/Not Resolved]
